FAERS Safety Report 23544342 (Version 2)
Quarter: 2024Q1

REPORT INFORMATION
  Report Type: Spontaneous
  Country: DE (occurrence: DE)
  Receive Date: 20240220
  Receipt Date: 20240312
  Transmission Date: 20240410
  Serious: Yes (Hospitalization, Other)
  Sender: FDA-Public Use
  Company Number: DE-BRISTOL-MYERS SQUIBB COMPANY-2024-026420

PATIENT
  Age: 87 Year
  Sex: Male
  Weight: 74.7 kg

DRUGS (1)
  1. ELIQUIS [Suspect]
     Active Substance: APIXABAN
     Indication: Atrial fibrillation
     Route: 048

REACTIONS (7)
  - Embolic stroke [Recovered/Resolved with Sequelae]
  - Vascular dementia [Unknown]
  - Constipation [Unknown]
  - Hypertension [Unknown]
  - Chronic kidney disease [Not Recovered/Not Resolved]
  - Pyelonephritis [Unknown]
  - Epilepsy [Unknown]

NARRATIVE: CASE EVENT DATE: 20240201
